FAERS Safety Report 5531426-0 (Version None)
Quarter: 2007Q4

REPORT INFORMATION
  Report Type: 
  Country: None (occurrence: None)
  Receive Date: 20071203
  Receipt Date: 20071121
  Transmission Date: 20080405
  Serious: Yes (Death, Life-Threatening, Other)
  Sender: FDA-Public Use
  Company Number: GB-JNJFOC-20071109031

PATIENT
  Sex: Male
  Weight: 55 kg

DRUGS (16)
  1. INFLIXIMAB [Suspect]
     Indication: RHEUMATOID ARTHRITIS
     Route: 042
  2. CLOPIDOGREL [Concomitant]
  3. CODEINE SUL TAB [Concomitant]
  4. DICLOFENAC [Concomitant]
  5. LEFLUNOMIDE [Concomitant]
  6. PREDNISOLONE [Concomitant]
  7. AMITRIPTLINE HCL [Concomitant]
  8. BECLOMETHASONE DIPROPIONATE [Concomitant]
  9. FERROUS SULFATE TAB [Concomitant]
  10. IBUPROFEN [Concomitant]
  11. LISINOPRIL [Concomitant]
  12. OMEPRAZOLE [Concomitant]
  13. PARACETAMOL [Concomitant]
  14. ALBUTEROL [Concomitant]
  15. SIMVASTATIN [Concomitant]
  16. BENDROFLUAZIDE [Concomitant]

REACTIONS (1)
  - DEATH [None]
